FAERS Safety Report 16900882 (Version 1)
Quarter: 2019Q4

REPORT INFORMATION
  Report Type: Spontaneous
  Country: US (occurrence: US)
  Receive Date: 20191009
  Receipt Date: 20191009
  Transmission Date: 20200122
  Serious: No
  Sender: FDA-Public Use
  Company Number: US-ALKERMES INC.-ALK-2019-000487

PATIENT
  Age: 40 Year
  Sex: Male
  Weight: 118.37 kg

DRUGS (1)
  1. ARISTADA [Suspect]
     Active Substance: ARIPIPRAZOLE LAUROXIL
     Indication: SCHIZOPHRENIA
     Dosage: 441 MG, QMO
     Route: 030
     Dates: start: 20180505, end: 20190225

REACTIONS (3)
  - Seizure [Not Recovered/Not Resolved]
  - Tongue biting [Recovering/Resolving]
  - Inappropriate schedule of product administration [Recovering/Resolving]

NARRATIVE: CASE EVENT DATE: 20190115
